FAERS Safety Report 25123772 (Version 2)
Quarter: 2025Q2

REPORT INFORMATION
  Report Type: Spontaneous
  Country: US (occurrence: US)
  Receive Date: 20250326
  Receipt Date: 20250405
  Transmission Date: 20250716
  Serious: Yes (Death, Life-Threatening, Hospitalization, Other)
  Sender: AUROBINDO
  Company Number: US-MLMSERVICE-20250312-P1441183-00217-3

PATIENT
  Age: 21 Year
  Sex: Female

DRUGS (5)
  1. METFORMIN HYDROCHLORIDE [Suspect]
     Active Substance: METFORMIN HYDROCHLORIDE
     Indication: Product used for unknown indication
     Route: 065
  2. ALCOHOL [Concomitant]
     Active Substance: ALCOHOL
     Indication: Product used for unknown indication
     Route: 065
  3. CAFFEINE [Concomitant]
     Active Substance: CAFFEINE
     Indication: Product used for unknown indication
     Route: 065
  4. ACETAMINOPHEN [Concomitant]
     Active Substance: ACETAMINOPHEN
     Indication: Product used for unknown indication
     Route: 065
  5. DIPHENHYDRAMINE [Concomitant]
     Active Substance: DIPHENHYDRAMINE
     Indication: Product used for unknown indication
     Route: 065

REACTIONS (12)
  - Pulseless electrical activity [Fatal]
  - Cardiac arrest [Fatal]
  - Death [Fatal]
  - Hypothermia [Unknown]
  - Distributive shock [Unknown]
  - Hypoglycaemia [Unknown]
  - Blood lactic acid increased [Unknown]
  - Electrocardiogram QT prolonged [Unknown]
  - Acidosis [Unknown]
  - Intentional overdose [Unknown]
  - Agitation [Unknown]
  - Abdominal pain [Unknown]
